FAERS Safety Report 24390096 (Version 1)
Quarter: 2024Q4

REPORT INFORMATION
  Report Type: Spontaneous
  Country: US (occurrence: US)
  Receive Date: 20241003
  Receipt Date: 20241003
  Transmission Date: 20250115
  Serious: Yes (Other)
  Sender: STRIDES
  Company Number: US-STRIDES ARCOLAB LIMITED-2024SP010326

PATIENT
  Age: 43 Year
  Sex: Female

DRUGS (5)
  1. PREDNISOLONE [Suspect]
     Active Substance: PREDNISOLONE
     Indication: Hypereosinophilic syndrome
     Dosage: 20 MILLIGRAM, QD
     Route: 065
  2. PREDNISOLONE [Suspect]
     Active Substance: PREDNISOLONE
     Dosage: UNK (DOSE REDUCED)
     Route: 065
  3. IMATINIB [Suspect]
     Active Substance: IMATINIB
     Indication: Hypereosinophilic syndrome
     Dosage: 400 MILLIGRAM, QD (FOR 6-WEEKS)
     Route: 048
  4. INTERFERON ALFA NOS [Suspect]
     Active Substance: INTERFERON ALFA-2A OR INTERFERON ALFA-2B
     Indication: Hypereosinophilic syndrome
     Dosage: UNK, QD (UP TO 3 MILLION UNITS)
     Route: 058
  5. HYDROXYUREA [Concomitant]
     Active Substance: HYDROXYUREA
     Indication: Hypereosinophilic syndrome
     Dosage: UNK
     Route: 065

REACTIONS (1)
  - Drug ineffective [Unknown]
